FAERS Safety Report 19607341 (Version 1)
Quarter: 2021Q3

REPORT INFORMATION
  Report Type: Spontaneous
  Country: JP (occurrence: JP)
  Receive Date: 20210726
  Receipt Date: 20210726
  Transmission Date: 20211014
  Serious: Yes (Other)
  Sender: FDA-Public Use
  Company Number: JP-CELLTRION INC.-2021JP009755

PATIENT

DRUGS (4)
  1. TRASTUZUMAB BS FOR I.V. INFUSION [NK] [Suspect]
     Active Substance: TRASTUZUMAB
     Indication: BREAST CANCER
     Dosage: UNK
     Route: 042
  2. CYCLOPHOSPHAMIDE HYDRATE [Concomitant]
     Active Substance: CYCLOPHOSPHAMIDE
     Indication: BREAST CANCER
     Dosage: FOUR COURSES
  3. EPIRUBICIN [NK] (EPIRUBICIN HYDROCHLORIDE) [Concomitant]
     Indication: BREAST CANCER
     Dosage: FOUR COURSES
  4. PERTUZUMAB(GENETICAL RECOMBINATION) [Concomitant]
     Active Substance: PERTUZUMAB
     Indication: BREAST CANCER
     Dosage: UNK

REACTIONS (2)
  - Polymyositis [Unknown]
  - Diarrhoea [Recovering/Resolving]
